FAERS Safety Report 22059459 (Version 1)
Quarter: 2023Q1

REPORT INFORMATION
  Report Type: Spontaneous
  Country: US (occurrence: None)
  Receive Date: 20230302
  Receipt Date: 20230302
  Transmission Date: 20230418
  Serious: No
  Sender: FDA-Public Use
  Company Number: None

PATIENT
  Age: 42 Year
  Sex: Female

DRUGS (1)
  1. VENOFER [Suspect]
     Active Substance: IRON SUCROSE
     Indication: Iron deficiency anaemia
     Dosage: 200MG/10ML  PER PROTOCOL IV?
     Route: 042
     Dates: start: 20230301

REACTIONS (6)
  - Muscle tightness [None]
  - Back pain [None]
  - Pain [None]
  - Peripheral swelling [None]
  - Palpitations [None]
  - Musculoskeletal stiffness [None]

NARRATIVE: CASE EVENT DATE: 20230301
